FAERS Safety Report 8400862-7 (Version None)
Quarter: 2012Q2

REPORT INFORMATION
  Report Type: 
  Country: None (occurrence: None)
  Receive Date: 20120601
  Receipt Date: 20120522
  Transmission Date: 20120825
  Serious: Yes (Hospitalization)
  Sender: FDA-Public Use
  Company Number: AU-B.I. PHARMACEUTICALS,INC./RIDGEFIELD-2012-AU-00968AU

PATIENT
  Age: 80 Year
  Sex: Female

DRUGS (2)
  1. PRADAXA [Suspect]
     Dosage: 220 MG
     Dates: start: 20120518
  2. PRADAXA [Suspect]
     Dosage: 300 MG

REACTIONS (1)
  - AORTIC VALVE REPLACEMENT [None]
